FAERS Safety Report 16379381 (Version 1)
Quarter: 2019Q2

REPORT INFORMATION
  Report Type: Report from Study
  Country: US (occurrence: US)
  Receive Date: 20190531
  Receipt Date: 20190531
  Transmission Date: 20190711
  Serious: Yes (Hospitalization, Other)
  Sender: FDA-Public Use
  Company Number: US-ACTELION-A-NJ2018-168068

PATIENT
  Age: 50 Year
  Sex: Female
  Weight: 74.38 kg

DRUGS (2)
  1. OPSUMIT [Suspect]
     Active Substance: MACITENTAN
     Indication: PULMONARY ARTERIAL HYPERTENSION
     Dosage: 10 MG, QD
     Route: 048
     Dates: start: 20180208
  2. REMODULIN [Suspect]
     Active Substance: TREPROSTINIL
     Indication: PULMONARY ARTERIAL HYPERTENSION
     Dosage: 0.034 ?G/KG, CONTINUOUS
     Route: 058
     Dates: start: 20171229

REACTIONS (7)
  - Oropharyngeal pain [Unknown]
  - Nasopharyngitis [Unknown]
  - Nasal congestion [Not Recovered/Not Resolved]
  - Peripheral swelling [Unknown]
  - Blood bilirubin increased [Unknown]
  - Injection site infection [Recovered/Resolved]
  - Hypersensitivity [Unknown]

NARRATIVE: CASE EVENT DATE: 20190415
